FAERS Safety Report 23627862 (Version 1)
Quarter: 2024Q1

REPORT INFORMATION
  Report Type: Spontaneous
  Country: US (occurrence: US)
  Receive Date: 20240313
  Receipt Date: 20240313
  Transmission Date: 20240410
  Serious: Yes (Other)
  Sender: FDA-Public Use
  Company Number: US-BIOVITRUM-2024-US-003967

PATIENT
  Age: 48 Year
  Sex: Male

DRUGS (1)
  1. VONJO [Suspect]
     Active Substance: PACRITINIB
     Indication: Myelofibrosis
     Dosage: 200MG TWICE A DAY
     Route: 048
     Dates: start: 20231103

REACTIONS (2)
  - Myeloproliferative neoplasm [Unknown]
  - Bone marrow failure [Unknown]
